FAERS Safety Report 5657569-9 (Version None)
Quarter: 2008Q1

REPORT INFORMATION
  Report Type: 
  Country: None (occurrence: None)
  Receive Date: 20080310
  Receipt Date: 20080227
  Transmission Date: 20080703
  Serious: Yes (Other)
  Sender: FDA-Public Use
  Company Number: PHBS2008FI02744

PATIENT
  Age: 80 Year
  Sex: Female

DRUGS (4)
  1. EXELON [Suspect]
     Dosage: 4.6 MG/DAY
     Route: 062
  2. OPAMOX [Concomitant]
     Indication: ANXIETY
  3. CIPRAMIL [Concomitant]
     Indication: ANXIETY
     Dosage: 10 MG, UNK
  4. STALEVO [Concomitant]
     Indication: PARKINSON'S DISEASE

REACTIONS (3)
  - INCOHERENT [None]
  - PSYCHOMOTOR HYPERACTIVITY [None]
  - RESTLESSNESS [None]
